FAERS Safety Report 6469294-5 (Version None)
Quarter: 2009Q4

REPORT INFORMATION
  Report Type: 
  Country: None (occurrence: None)
  Receive Date: 20091203
  Receipt Date: 20081003
  Transmission Date: 20100525
  Serious: Yes (Disabling, Other)
  Sender: FDA-Public Use
  Company Number: US-ELI_LILLY_AND_COMPANY-US200708004423

PATIENT
  Sex: Female

DRUGS (2)
  1. FORTEO [Suspect]
     Indication: LOWER LIMB FRACTURE
     Dosage: UNK, UNK
     Dates: start: 20050413, end: 20070509
  2. KLONOPIN [Concomitant]
     Dosage: 2 MG, DAILY (1/D)

REACTIONS (11)
  - ARTHROPATHY [None]
  - DEAFNESS [None]
  - INJECTION SITE HAEMATOMA [None]
  - MEMORY IMPAIRMENT [None]
  - MUSCULOSKELETAL DISCOMFORT [None]
  - OSTEITIS DEFORMANS [None]
  - PAIN IN EXTREMITY [None]
  - SPINAL COLUMN STENOSIS [None]
  - SPINAL COMPRESSION FRACTURE [None]
  - SPINAL FRACTURE [None]
  - VIIITH NERVE LESION [None]
